FAERS Safety Report 17555892 (Version 1)
Quarter: 2020Q1

REPORT INFORMATION
  Report Type: Spontaneous
  Country: GB (occurrence: GB)
  Receive Date: 20200318
  Receipt Date: 20200318
  Transmission Date: 20200409
  Serious: Yes (Hospitalization, Other)
  Sender: FDA-Public Use
  Company Number: GB-PFIZER INC-2020111593

PATIENT
  Age: 73 Year
  Sex: Male

DRUGS (2)
  1. FUSIDIC ACID [Interacting]
     Active Substance: FUSIDIC ACID
     Indication: INFECTION
     Dosage: UNK
     Dates: start: 201806
  2. ATORVASTATIN CALCIUM. [Suspect]
     Active Substance: ATORVASTATIN CALCIUM
     Indication: INFECTION
     Dosage: 80 MG, UNK
     Dates: start: 201806

REACTIONS (6)
  - Chromaturia [Unknown]
  - Myalgia [Unknown]
  - Labelled drug-drug interaction medication error [Unknown]
  - Blood creatine phosphokinase increased [Unknown]
  - Off label use [Unknown]
  - Product use in unapproved indication [Unknown]

NARRATIVE: CASE EVENT DATE: 20180731
